FAERS Safety Report 7376510-4 (Version None)
Quarter: 2011Q1

REPORT INFORMATION
  Report Type: 
  Country: None (occurrence: None)
  Receive Date: 20110325
  Receipt Date: 20110317
  Transmission Date: 20110831
  Serious: Yes (Hospitalization)
  Sender: FDA-Public Use
  Company Number: A0917263A

PATIENT
  Age: 69 Year
  Sex: Female

DRUGS (2)
  1. OFATUMUMAB [Suspect]
     Indication: NON-HODGKIN'S LYMPHOMA
     Dosage: 1G WEEKLY
     Route: 042
     Dates: start: 20100607, end: 20100726
  2. LENALIDOMIDE [Suspect]
     Indication: NON-HODGKIN'S LYMPHOMA
     Route: 048
     Dates: start: 20100608, end: 20101221

REACTIONS (3)
  - ATAXIA [None]
  - CONFUSIONAL STATE [None]
  - CEREBELLAR SYNDROME [None]
